FAERS Safety Report 8990866 (Version 1)
Quarter: 2012Q4

REPORT INFORMATION
  Report Type: 
  Country: US (occurrence: US)
  Receive Date: 20121231
  Receipt Date: 20121231
  Transmission Date: 20130627
  Serious: No
  Sender: FDA-Public Use
  Company Number: US-009507513-1212USA010734

PATIENT
  Sex: Female

DRUGS (4)
  1. VICTRELIS [Suspect]
     Dosage: 800 mg, tid
     Route: 048
  2. GABAPENTIN [Concomitant]
     Dosage: 100 mg
  3. CHOLECALCIFEROL [Concomitant]
     Dosage: 5000 Unit
  4. VITAMIN B COMPLEX [Concomitant]
     Dosage: Inj 100

REACTIONS (1)
  - Fatigue [Unknown]
